FAERS Safety Report 20805147 (Version 1)
Quarter: 2022Q2

REPORT INFORMATION
  Report Type: Report from Study
  Country: US (occurrence: US)
  Receive Date: 20220509
  Receipt Date: 20220509
  Transmission Date: 20220720
  Serious: Yes (Other)
  Sender: FDA-Public Use
  Company Number: US-JAZZ-2022-US-014512

PATIENT
  Sex: Female

DRUGS (1)
  1. XYWAV [Suspect]
     Active Substance: CALCIUM OXYBATE\MAGNESIUM OXYBATE\POTASSIUM OXYBATE\SODIUM OXYBATE
     Indication: Hypersomnia
     Route: 048

REACTIONS (5)
  - Blindness [Recovered/Resolved]
  - Hypoaesthesia [Unknown]
  - Visual impairment [Unknown]
  - Pain [Unknown]
  - Product dose omission issue [Unknown]
